FAERS Safety Report 20930172 (Version 1)
Quarter: 2022Q2

REPORT INFORMATION
  Report Type: Spontaneous
  Country: JP (occurrence: None)
  Receive Date: 20220608
  Receipt Date: 20220608
  Transmission Date: 20220720
  Serious: Yes (Other)
  Sender: FDA-Public Use
  Company Number: 2022A207974

PATIENT
  Age: 61 Year
  Sex: Female

DRUGS (1)
  1. FASLODEX [Suspect]
     Active Substance: FULVESTRANT
     Indication: Breast cancer female
     Dosage: 250.0MG UNKNOWN
     Route: 030

REACTIONS (3)
  - Fistula [Recovered/Resolved]
  - Post procedural fistula [Recovered/Resolved]
  - Incorrect route of product administration [Unknown]
